FAERS Safety Report 10206569 (Version 15)
Quarter: 2016Q1

REPORT INFORMATION
  Report Type: Spontaneous
  Country: US (occurrence: US)
  Receive Date: 20140530
  Receipt Date: 20160311
  Transmission Date: 20160525
  Serious: Yes (Hospitalization, Other)
  Sender: FDA-Public Use
  Company Number: US-GLAXOSMITHKLINE-A1038620A

PATIENT
  Age: 61 Year
  Sex: Female

DRUGS (13)
  1. COUMADIN [Concomitant]
     Active Substance: WARFARIN SODIUM
     Indication: PRODUCT USED FOR UNKNOWN INDICATION
     Dosage: UNK
  2. FLOLAN [Suspect]
     Active Substance: EPOPROSTENOL SODIUM
     Indication: PULMONARY ARTERIAL HYPERTENSION
     Dosage: 11 NG/KG/MIN, 15,000 NG/ML, PUMP RATE 56 ML/DAY, VIAL STRENGTH 1.5 MG14 NG/KG/MIN, 15,000 NG/ML[...]
     Route: 042
     Dates: start: 20120809
  3. FLOLAN [Suspect]
     Active Substance: EPOPROSTENOL SODIUM
     Dosage: UNK
     Dates: start: 20120813
  4. FLOLAN [Suspect]
     Active Substance: EPOPROSTENOL SODIUM
     Dosage: 26 NG/KG/MIN CONTINUOUS; CONCENTRATION: 30,000 NG/ML; PUMP RATE: 66 ML/DAY; VIAL STRENGTH: 1.5 MG
     Route: 042
     Dates: start: 20120813
  5. FLOLAN [Suspect]
     Active Substance: EPOPROSTENOL SODIUM
     Dosage: UNK
     Dates: start: 20120813
  6. FLOLAN [Suspect]
     Active Substance: EPOPROSTENOL SODIUM
     Dosage: UNK
  7. FLOLAN [Suspect]
     Active Substance: EPOPROSTENOL SODIUM
     Dosage: 26 DF, CO
     Dates: start: 20120809
  8. FLOLAN [Suspect]
     Active Substance: EPOPROSTENOL SODIUM
     Dosage: 26 DF, UNK
     Dates: start: 20120809
  9. FLOLAN [Suspect]
     Active Substance: EPOPROSTENOL SODIUM
     Dosage: 39 DF, CO
     Dates: start: 20120809
  10. REVATIO [Concomitant]
     Active Substance: SILDENAFIL CITRATE
     Indication: PRODUCT USED FOR UNKNOWN INDICATION
     Dosage: UNK
  11. FLOLAN [Suspect]
     Active Substance: EPOPROSTENOL SODIUM
     Dosage: 26 NG/KG/MIN CONTINUOUS; CONCENTRATION: 30,000 NG/ML; PUMP RATE: 66 ML/DAY; VIAL STRENGTH: 1.5 MG
     Route: 042
  12. FLOLAN [Suspect]
     Active Substance: EPOPROSTENOL SODIUM
     Dosage: UNK
     Dates: start: 20120813
  13. FLOLAN [Suspect]
     Active Substance: EPOPROSTENOL SODIUM
     Dosage: UNK
     Dates: start: 20120813

REACTIONS (11)
  - Cardiac arrest [Unknown]
  - Dyspnoea [Unknown]
  - Hospitalisation [Unknown]
  - Hypersensitivity [Unknown]
  - Infusion site irritation [Unknown]
  - Gastroenteritis viral [Unknown]
  - Weight decreased [Unknown]
  - Erythema [Unknown]
  - Rash [Unknown]
  - Pain in jaw [Not Recovered/Not Resolved]
  - Infusion site pruritus [Unknown]

NARRATIVE: CASE EVENT DATE: 20140514
